FAERS Safety Report 13126922 (Version 1)
Quarter: 2017Q1

REPORT INFORMATION
  Report Type: Spontaneous
  Country: US (occurrence: US)
  Receive Date: 20170118
  Receipt Date: 20170118
  Transmission Date: 20170428
  Serious: No
  Sender: FDA-Public Use
  Company Number: US-ROCHE-1781531

PATIENT
  Sex: Female

DRUGS (2)
  1. ACP-196 (BTK INHIBITOR) [Concomitant]
     Active Substance: ACALABRUTINIB
  2. RITUXAN [Suspect]
     Active Substance: RITUXIMAB
     Indication: NON-HODGKIN^S LYMPHOMA
     Route: 065
     Dates: start: 201601

REACTIONS (4)
  - Fatigue [Unknown]
  - Lethargy [Unknown]
  - Disturbance in attention [Unknown]
  - Hyperhidrosis [Unknown]
